FAERS Safety Report 25172955 (Version 1)
Quarter: 2025Q2

REPORT INFORMATION
  Report Type: Report from Study
  Country: US (occurrence: US)
  Receive Date: 20250408
  Receipt Date: 20250408
  Transmission Date: 20250716
  Serious: No
  Sender: SYNDAX
  Company Number: US-SYNDAX PHARMACEUTICALS, INC.-2025US000309

PATIENT
  Sex: Female
  Weight: 194.23 kg

DRUGS (1)
  1. REVUFORJ [Suspect]
     Active Substance: REVUMENIB CITRATE
     Indication: Acute myeloid leukaemia
     Dosage: 270 MILLIGRAM, BID
     Route: 048
     Dates: start: 20250106

REACTIONS (1)
  - Ageusia [Unknown]
